FAERS Safety Report 15067063 (Version 2)
Quarter: 2018Q2

REPORT INFORMATION
  Report Type: Report from Study
  Country: CA (occurrence: CA)
  Receive Date: 20180626
  Receipt Date: 20180629
  Transmission Date: 20180711
  Serious: Yes (Other)
  Sender: FDA-Public Use
  Company Number: CA-UCBSA-2017051507

PATIENT
  Age: 28 Year
  Sex: Female
  Weight: 79 kg

DRUGS (6)
  1. PANTOLOC [Concomitant]
     Active Substance: PANTOPRAZOLE SODIUM
     Indication: PRODUCT USED FOR UNKNOWN INDICATION
     Dosage: 40 MG, ONCE DAILY (QD)
  2. CERTOLIZUMAB PEGOL AUTOCLICKS [Suspect]
     Active Substance: CERTOLIZUMAB PEGOL
     Indication: ANKYLOSING SPONDYLITIS
     Dosage: 400 MG, EV 2 WEEKS(QOW)
     Route: 058
     Dates: start: 20171211, end: 2017
  3. NAPROXEN. [Concomitant]
     Active Substance: NAPROXEN
     Indication: ARTHRITIS
     Dosage: 500 MG, 2X/DAY (BID)
  4. CERTOLIZUMAB PEGOL AUTOCLICKS [Suspect]
     Active Substance: CERTOLIZUMAB PEGOL
     Dosage: 400 MG, EV 2 WEEKS(QOW) (TOOK SECOND LOADING DOSE)
     Route: 058
     Dates: start: 20180108, end: 2018
  5. CERTOLIZUMAB PEGOL AUTOCLICKS [Suspect]
     Active Substance: CERTOLIZUMAB PEGOL
     Dosage: 200 MG, EV 2 WEEKS(QOW)
     Route: 058
     Dates: start: 2018, end: 2018
  6. CERTOLIZUMAB PEGOL AUTOCLICKS [Suspect]
     Active Substance: CERTOLIZUMAB PEGOL
     Dosage: UNK
     Dates: end: 20180506

REACTIONS (12)
  - Tongue pruritus [Unknown]
  - Influenza [Recovering/Resolving]
  - Syringe issue [Unknown]
  - Tongue discolouration [Unknown]
  - Pharyngitis streptococcal [Recovered/Resolved]
  - Drug dose omission [Unknown]
  - Fatigue [Unknown]
  - Drug ineffective [Unknown]
  - Dizziness [Recovered/Resolved]
  - Ear pain [Recovered/Resolved]
  - Gingival disorder [Unknown]
  - Glossodynia [Unknown]

NARRATIVE: CASE EVENT DATE: 20171211
